FAERS Safety Report 12810195 (Version 1)
Quarter: 2016Q4

REPORT INFORMATION
  Report Type: Report from Study
  Country: US (occurrence: US)
  Receive Date: 20161005
  Receipt Date: 20161005
  Transmission Date: 20170207
  Serious: No
  Sender: FDA-Public Use
  Company Number: US-AMGEN-USASL2016134239

PATIENT
  Sex: Female

DRUGS (2)
  1. BENADRYL [Concomitant]
     Active Substance: DIPHENHYDRAMINE HYDROCHLORIDE
     Dosage: UNK
     Route: 042
     Dates: start: 201609
  2. ENBREL [Suspect]
     Active Substance: ETANERCEPT
     Indication: PSORIATIC ARTHROPATHY
     Dosage: 50 MG, QWK
     Route: 065

REACTIONS (8)
  - Injection site swelling [Unknown]
  - Dyspnoea [Unknown]
  - Injection site erythema [Unknown]
  - Chest discomfort [Unknown]
  - Palpitations [Unknown]
  - Blood pressure increased [Unknown]
  - Hypoaesthesia oral [Unknown]
  - Injection site warmth [Unknown]

NARRATIVE: CASE EVENT DATE: 201609
